FAERS Safety Report 8176093-5 (Version None)
Quarter: 2012Q1

REPORT INFORMATION
  Report Type: 
  Country: None (occurrence: None)
  Receive Date: 20120301
  Receipt Date: 20120221
  Transmission Date: 20120608
  Serious: Yes (Other)
  Sender: FDA-Public Use
  Company Number: GR-BRISTOL-MYERS SQUIBB COMPANY-16408569

PATIENT
  Age: 80 Year
  Sex: Female

DRUGS (3)
  1. XANAX [Concomitant]
     Dosage: 1DF:1/2 TAB DAILY
     Dates: start: 20120216
  2. FLUOXETINE [Concomitant]
     Dosage: 1DF:20MG 1/2 TAB IN MORNING
     Dates: start: 20120216
  3. ABILIFY [Suspect]
     Indication: PSYCHOTIC DISORDER
     Route: 048
     Dates: start: 20120216, end: 20120218

REACTIONS (3)
  - SUICIDAL IDEATION [None]
  - SLEEP DISORDER [None]
  - FEELING ABNORMAL [None]
